FAERS Safety Report 18737476 (Version 1)
Quarter: 2021Q1

REPORT INFORMATION
  Report Type: Spontaneous
  Country: DE (occurrence: DE)
  Receive Date: 20210113
  Receipt Date: 20210113
  Transmission Date: 20210419
  Serious: Yes (Hospitalization, Disabling, Other)
  Sender: FDA-Public Use
  Company Number: DE-ANIPHARMA-2021-DE-000004

PATIENT
  Age: 67 Year
  Sex: Male
  Weight: 97 kg

DRUGS (5)
  1. BYETTA [Concomitant]
     Active Substance: EXENATIDE
     Dosage: 10 UG BID
     Route: 065
     Dates: start: 201101
  2. MAGNESIUM [Concomitant]
     Active Substance: MAGNESIUM
     Dosage: 300: ONE TABLET DAILY
     Route: 065
     Dates: start: 200601
  3. CANDESARTAN CILEXETIL. [Suspect]
     Active Substance: CANDESARTAN CILEXETIL
     Indication: PRODUCT USED FOR UNKNOWN INDICATION
     Dosage: 8 MG BID
     Route: 048
     Dates: start: 20180706
  4. ACETYLSALICYLIC ACID [Concomitant]
     Active Substance: ASPIRIN
     Dosage: 100: ONE TABLET DAILY
     Route: 048
     Dates: start: 199101
  5. METFORMIN [Concomitant]
     Active Substance: METFORMIN HYDROCHLORIDE
     Dosage: 1000: TWO TABLETS DAILY
     Route: 048
     Dates: start: 201101

REACTIONS (5)
  - Nasopharyngitis [Unknown]
  - Arterial occlusive disease [Recovered/Resolved with Sequelae]
  - Cough [Unknown]
  - Pollakiuria [Unknown]
  - Dizziness [Unknown]
